FAERS Safety Report 25479535 (Version 2)
Quarter: 2025Q2

REPORT INFORMATION
  Report Type: Spontaneous
  Country: US (occurrence: US)
  Receive Date: 20250625
  Receipt Date: 20250626
  Transmission Date: 20250717
  Serious: Yes (Hospitalization)
  Sender: SANOFI AVENTIS
  Company Number: US-SA-2025SA117601

PATIENT
  Age: 84 Year
  Sex: Female
  Weight: 60.45 kg

DRUGS (1)
  1. DUPIXENT [Suspect]
     Active Substance: DUPILUMAB
     Indication: Asthma
     Dosage: 300 MG, QOW
     Route: 058

REACTIONS (8)
  - Hospitalisation [Unknown]
  - Post procedural complication [Unknown]
  - Vitreous floaters [Unknown]
  - Disorientation [Unknown]
  - Vision blurred [Unknown]
  - Eye operation [Unknown]
  - Laser surgery [Unknown]
  - Product dose omission in error [Unknown]

NARRATIVE: CASE EVENT DATE: 20250618
